FAERS Safety Report 10278687 (Version 3)
Quarter: 2014Q3

REPORT INFORMATION
  Report Type: Spontaneous
  Country: US (occurrence: US)
  Receive Date: 20140704
  Receipt Date: 20140814
  Transmission Date: 20150326
  Serious: Yes (Hospitalization)
  Sender: FDA-Public Use
  Company Number: US-ASTRAZENECA-2014SE47292

PATIENT
  Age: 61 Year
  Sex: Female
  Weight: 108.9 kg

DRUGS (11)
  1. SYMBICORT [Suspect]
     Active Substance: BUDESONIDE\FORMOTEROL FUMARATE DIHYDRATE
     Indication: ASTHMA
     Dosage: 80/4.5 MCG WITH UNKNOWN FREQUENCY
     Route: 055
  2. LIPITOR [Concomitant]
     Active Substance: ATORVASTATIN CALCIUM
     Indication: BLOOD CHOLESTEROL
  3. VITAMIN D [Concomitant]
     Active Substance: CHOLECALCIFEROL
     Indication: VITAMIN D DEFICIENCY
  4. SYMBICORT [Suspect]
     Active Substance: BUDESONIDE\FORMOTEROL FUMARATE DIHYDRATE
     Indication: ASTHMA
     Dosage: 80/4.5 MCG 1 PUFF TWO TIMES A DAY
     Route: 055
     Dates: start: 20140424
  5. DILTIAZEM HCL [Concomitant]
     Active Substance: DILTIAZEM HYDROCHLORIDE
     Indication: HYPERTENSION
  6. SYMBICORT [Suspect]
     Active Substance: BUDESONIDE\FORMOTEROL FUMARATE DIHYDRATE
     Indication: CHRONIC OBSTRUCTIVE PULMONARY DISEASE
     Dosage: 80/4.5 MCG WITH UNKNOWN FREQUENCY
     Route: 055
  7. POTASSIUM [Concomitant]
     Active Substance: POTASSIUM
     Indication: HYPOKALAEMIA
  8. DUONEB [Concomitant]
     Active Substance: ALBUTEROL SULFATE\IPRATROPIUM BROMIDE
     Dosage: 0.5-2.5 (3) MG/3 ML, USE 1 UNIT DOSE IN NEBULIZER EVERY 4 HOURS AS NEEDED
  9. SYMBICORT [Suspect]
     Active Substance: BUDESONIDE\FORMOTEROL FUMARATE DIHYDRATE
     Indication: CHRONIC OBSTRUCTIVE PULMONARY DISEASE
     Dosage: 80/4.5 MCG 1 PUFF TWO TIMES A DAY
     Route: 055
     Dates: start: 20140424
  10. METFORMIN [Concomitant]
     Active Substance: METFORMIN HYDROCHLORIDE
     Indication: DIABETES MELLITUS
  11. ACT NASAL SUSPENSION [Concomitant]
     Dosage: 50 MCG USE AS DIRECTED
     Route: 045

REACTIONS (14)
  - Nervousness [Not Recovered/Not Resolved]
  - Intentional product misuse [Unknown]
  - Pneumonia [Recovered/Resolved with Sequelae]
  - Adverse event [Not Recovered/Not Resolved]
  - Headache [Not Recovered/Not Resolved]
  - Oedema peripheral [Unknown]
  - Circumstance or information capable of leading to medication error [Unknown]
  - Sepsis [Recovered/Resolved]
  - Dyspnoea exertional [Recovering/Resolving]
  - Drug ineffective [Unknown]
  - Lung disorder [Recovering/Resolving]
  - Diabetes mellitus [Unknown]
  - Sleep apnoea syndrome [Unknown]
  - Hepatic steatosis [Unknown]

NARRATIVE: CASE EVENT DATE: 2012
